FAERS Safety Report 20114112 (Version 1)
Quarter: 2021Q4

REPORT INFORMATION
  Report Type: Report from Study
  Country: CA (occurrence: CA)
  Receive Date: 20211125
  Receipt Date: 20211125
  Transmission Date: 20220303
  Serious: Yes (Other)
  Sender: FDA-Public Use
  Company Number: CA-TAKEDA-2021TUS069266

PATIENT
  Age: 55 Year
  Sex: Female

DRUGS (4)
  1. VEDOLIZUMAB [Suspect]
     Active Substance: VEDOLIZUMAB
     Indication: Colitis ulcerative
     Dosage: 300 MILLIGRAM
     Route: 042
     Dates: start: 20210204
  2. Salofalk [Concomitant]
     Dosage: 500 MILLIGRAM
     Route: 048
     Dates: start: 2016
  3. Salofalk [Concomitant]
     Dosage: 500 MILLIGRAM
     Dates: start: 2016
  4. MESALAMINE [Concomitant]
     Active Substance: MESALAMINE
     Dosage: UNK UNK, QD
     Dates: start: 202007

REACTIONS (1)
  - Foot fracture [Not Recovered/Not Resolved]
